FAERS Safety Report 4955980-2 (Version None)
Quarter: 2006Q1

REPORT INFORMATION
  Report Type: 
  Country: None (occurrence: None)
  Receive Date: 20060328
  Receipt Date: 20051123
  Transmission Date: 20060701
  Serious: Yes (Hospitalization, Disabling, Other)
  Sender: FDA-Public Use
  Company Number: US-MERCK-0511USA04079

PATIENT
  Age: 58 Year
  Sex: Male
  Weight: 105 kg

DRUGS (6)
  1. VIOXX [Suspect]
     Indication: PSORIATIC ARTHROPATHY
     Route: 048
     Dates: start: 19990729, end: 20020501
  2. FLUOCINONIDE [Concomitant]
     Indication: SKIN DISORDER
     Route: 065
     Dates: start: 19991026
  3. FUROSEMIDE [Concomitant]
     Indication: HYPERTENSION
     Route: 065
     Dates: start: 19990525
  4. FUROSEMIDE [Concomitant]
     Indication: OEDEMA
     Route: 065
     Dates: start: 19990525
  5. ASPIRIN [Concomitant]
     Route: 065
  6. ACETAMINOPHEN AND HYDROCODONE BITARTRATE [Concomitant]
     Indication: PAIN
     Route: 065
     Dates: start: 19990806

REACTIONS (17)
  - ADVERSE EVENT [None]
  - ANXIETY [None]
  - BLOOD CHOLESTEROL INCREASED [None]
  - CARDIAC DISORDER [None]
  - CEREBROVASCULAR ACCIDENT [None]
  - CHEST PAIN [None]
  - CONVULSION [None]
  - COUGH [None]
  - EAR INFECTION [None]
  - EYE INFECTION [None]
  - FUNGAL INFECTION [None]
  - GOUT [None]
  - INFECTION [None]
  - KNEE ARTHROPLASTY [None]
  - RENAL DISORDER [None]
  - TENSION [None]
  - UPPER RESPIRATORY TRACT INFECTION [None]
